FAERS Safety Report 14228670 (Version 1)
Quarter: 2017Q4

REPORT INFORMATION
  Report Type: Spontaneous
  Country: US (occurrence: None)
  Receive Date: 20171124
  Receipt Date: 20171124
  Transmission Date: 20180321
  Serious: No
  Sender: FDA-Public Use
  Company Number: None

PATIENT
  Age: 71 Year
  Sex: Male

DRUGS (1)
  1. CAPECITABINE TAB 500MG [Suspect]
     Active Substance: CAPECITABINE
     Dosage: 5 TABS Q 12 HOURS X 7 PO
     Route: 048

REACTIONS (4)
  - Skin ulcer [None]
  - Lacrimation increased [None]
  - Dry skin [None]
  - Balance disorder [None]

NARRATIVE: CASE EVENT DATE: 20171124
